FAERS Safety Report 16375524 (Version 2)
Quarter: 2019Q2

REPORT INFORMATION
  Report Type: Spontaneous
  Country: FR (occurrence: FR)
  Receive Date: 20190531
  Receipt Date: 20190626
  Transmission Date: 20190711
  Serious: Yes (Other)
  Sender: FDA-Public Use
  Company Number: FR-REGENERON PHARMACEUTICALS, INC.-2019-34206

PATIENT

DRUGS (1)
  1. EYLEA [Suspect]
     Active Substance: AFLIBERCEPT
     Indication: PRODUCT USED FOR UNKNOWN INDICATION
     Dosage: TOTAL DOSES AND LAST DOSE PRIOR THE EVENT WERE NOT POVIDED

REACTIONS (4)
  - Cerebral small vessel ischaemic disease [Unknown]
  - Migraine with aura [Unknown]
  - Anxiety [Unknown]
  - Sleep disorder [Unknown]
